FAERS Safety Report 5853472-X (Version None)
Quarter: 2008Q3

REPORT INFORMATION
  Report Type: 
  Country: None (occurrence: None)
  Receive Date: 20080820
  Receipt Date: 20080225
  Transmission Date: 20090109
  Serious: Yes (Hospitalization, Other)
  Sender: FDA-Public Use
  Company Number: 2008-00220FE

PATIENT
  Age: 26 Year
  Sex: Female

DRUGS (2)
  1. MENOTROPHIN () (MENOTROPHIN) [Suspect]
     Dosage: IM
     Route: 030
     Dates: start: 19930601, end: 19930708
  2. CLOMIPHENE CITRATE [Concomitant]

REACTIONS (10)
  - ABORTION SPONTANEOUS [None]
  - ASCITES [None]
  - ASPARTATE AMINOTRANSFERASE INCREASED [None]
  - CHROMATURIA [None]
  - DRUG EXPOSURE DURING PREGNANCY [None]
  - HEPATOCELLULAR INJURY [None]
  - LIVER INJURY [None]
  - OVARIAN CYST [None]
  - OVARIAN HYPERSTIMULATION SYNDROME [None]
  - TRANSAMINASES INCREASED [None]
